FAERS Safety Report 15489828 (Version 1)
Quarter: 2018Q4

REPORT INFORMATION
  Report Type: Spontaneous
  Country: US (occurrence: US)
  Receive Date: 20181011
  Receipt Date: 20181011
  Transmission Date: 20190205
  Serious: Yes (Hospitalization)
  Sender: FDA-Public Use
  Company Number: US-LANNETT COMPANY, INC.-US-2018LAN001188

PATIENT

DRUGS (15)
  1. HYDROMORPHONE HYDROCHLORIDE (8MG) [Suspect]
     Active Substance: HYDROMORPHONE HYDROCHLORIDE
     Dosage: UNK (DOSE DECREASED; ON DAY 19)
  2. LIDOCAINE. [Suspect]
     Active Substance: LIDOCAINE
     Indication: NEURALGIA
     Dosage: UNK (HIGH DOSE; PROLONGED DURATION)
     Route: 065
  3. IMMUNOGLOBULIN                     /00025201/ [Concomitant]
     Active Substance: HUMAN IMMUNOGLOBULIN G
     Route: 042
  4. COCAINE [Concomitant]
     Active Substance: COCAINE
     Indication: PRODUCT USED FOR UNKNOWN INDICATION
     Dosage: UNK
     Route: 061
  5. METHOTREXATE. [Concomitant]
     Active Substance: METHOTREXATE
     Indication: PRODUCT USED FOR UNKNOWN INDICATION
  6. OXYCODONE HYDROCHLORIDE. [Suspect]
     Active Substance: OXYCODONE HYDROCHLORIDE
     Indication: PAIN
     Dosage: 300 MG, QD (OME; IMMEDIATE AND EXTENDED RELEASE)
     Route: 048
  7. AZATHIOPRINE. [Concomitant]
     Active Substance: AZATHIOPRINE
     Indication: PRODUCT USED FOR UNKNOWN INDICATION
  8. HYDROMORPHONE HYDROCHLORIDE (8MG) [Suspect]
     Active Substance: HYDROMORPHONE HYDROCHLORIDE
     Dosage: UNK (ON DAY 15; ONLY PATIENT CONTROLLED ANALGESIA)
     Route: 042
  9. HYDROMORPHONE HYDROCHLORIDE (8MG) [Suspect]
     Active Substance: HYDROMORPHONE HYDROCHLORIDE
     Dosage: 100 GTT, UNK (ON DAY 32)
     Route: 065
  10. HYDROMORPHONE HYDROCHLORIDE (8MG) [Suspect]
     Active Substance: HYDROMORPHONE HYDROCHLORIDE
     Dosage: 1100 GTT, UNK (ON DAY 33)
     Route: 065
  11. OXYCODONE HYDROCHLORIDE. [Suspect]
     Active Substance: OXYCODONE HYDROCHLORIDE
     Dosage: 240 MG, QD (ON DAY 15; OME)
     Route: 048
  12. OXYCODONE HYDROCHLORIDE. [Suspect]
     Active Substance: OXYCODONE HYDROCHLORIDE
     Dosage: 96 MG, QD (DOSE DECREASED; OME; ON DAY 19)
     Route: 048
  13. METHADONE [Suspect]
     Active Substance: METHADONE HYDROCHLORIDE
     Indication: PAIN
     Dosage: UNK (LONG-ACTING)
     Route: 065
  14. HYDROMORPHONE HYDROCHLORIDE (8MG) [Suspect]
     Active Substance: HYDROMORPHONE HYDROCHLORIDE
     Indication: PAIN
     Dosage: UNK
     Route: 051
  15. PREDNISONE. [Concomitant]
     Active Substance: PREDNISONE
     Indication: PRODUCT USED FOR UNKNOWN INDICATION

REACTIONS (8)
  - Delirium [Unknown]
  - Confusional state [Unknown]
  - Hallucination, visual [Unknown]
  - Agitation [Recovered/Resolved]
  - Electrocardiogram QT prolonged [Unknown]
  - Paranoia [Unknown]
  - Hallucination, auditory [Unknown]
  - Convulsive threshold lowered [Unknown]
